FAERS Safety Report 17285148 (Version 1)
Quarter: 2020Q1

REPORT INFORMATION
  Report Type: Spontaneous
  Country: FR (occurrence: FR)
  Receive Date: 20200117
  Receipt Date: 20200117
  Transmission Date: 20200409
  Serious: Yes (Hospitalization)
  Sender: FDA-Public Use
  Company Number: FR-MYLANLABS-2020M1004670

PATIENT
  Age: 61 Year
  Sex: Male
  Weight: 94 kg

DRUGS (24)
  1. CEFTRIAXONE MYLAN 1 G, POUDRE POUR SOLUTION INJECTABLE [Suspect]
     Active Substance: CEFTRIAXONE
     Indication: PNEUMONIA
     Dosage: 1 GRAM, TOTAL
     Route: 042
     Dates: start: 20191008, end: 20191008
  2. RISORDAN                           /07346501/ [Suspect]
     Active Substance: ISOSORBIDE DINITRATE
     Indication: CARDIAC FAILURE
     Dosage: 2 MILLIGRAM, QH
     Route: 042
     Dates: start: 20191008, end: 20191008
  3. ZOPHREN                            /00955302/ [Suspect]
     Active Substance: ONDANSETRON
     Indication: PREMEDICATION
     Dosage: 8 MILLIGRAM, CYCLE
     Route: 042
     Dates: start: 20190916, end: 20191007
  4. CARBOPLATINE [Suspect]
     Active Substance: CARBOPLATIN
     Indication: LUNG ADENOCARCINOMA
     Dosage: 800 MILLIGRAM, CYCLE
     Route: 042
     Dates: start: 20190916, end: 20191007
  5. LOVENOX [Suspect]
     Active Substance: ENOXAPARIN SODIUM
     Indication: THROMBOSIS PROPHYLAXIS
     Dosage: 0-0-1
     Route: 058
     Dates: start: 20191008, end: 20191014
  6. RAMIPRIL MYLAN [Concomitant]
     Active Substance: RAMIPRIL
     Indication: HYPERTENSION
     Dosage: 1-0-0
     Route: 048
     Dates: end: 20191009
  7. GLUCOPHAGE [Concomitant]
     Active Substance: METFORMIN HYDROCHLORIDE
     Indication: TYPE 2 DIABETES MELLITUS
     Dosage: 1-1-1
     Route: 048
     Dates: end: 20191008
  8. ACIDE FOLIQUE [Concomitant]
     Active Substance: FOLIC ACID
     Indication: ANAEMIA
     Dosage: 1-0-0
     Route: 048
     Dates: start: 20190823
  9. MOPRAL                             /00661203/ [Concomitant]
     Active Substance: OMEPRAZOLE MAGNESIUM
     Indication: PROPHYLAXIS AGAINST GASTROINTESTINAL ULCER
     Dosage: 0-0-1
     Route: 048
     Dates: end: 20191008
  10. METHYLPREDNISOLONE MYLAN [Suspect]
     Active Substance: METHYLPREDNISOLONE
     Indication: PREMEDICATION
     Dosage: 60 MILLIGRAM, CYCLE
     Route: 042
     Dates: start: 20190916, end: 20191007
  11. GENTAMICINE PANPHARMA [Suspect]
     Active Substance: GENTAMICIN
     Indication: PNEUMONIA
     Dosage: 180 MILLIGRAM, TOTAL
     Route: 042
     Dates: start: 20191008, end: 20191008
  12. LASILIX                            /00032601/ [Suspect]
     Active Substance: FUROSEMIDE
     Indication: CARDIAC FAILURE
     Dosage: 80 MILLIGRAM, QD
     Route: 042
     Dates: start: 20191008, end: 20191009
  13. JANUVIA [Concomitant]
     Active Substance: SITAGLIPTIN PHOSPHATE
     Indication: TYPE 2 DIABETES MELLITUS
     Dosage: 1-0-0
     Route: 048
     Dates: end: 20191008
  14. ATORVASTATINE ARROW [Concomitant]
     Active Substance: ATORVASTATIN
     Indication: DYSLIPIDAEMIA
     Dosage: 0-0-1
     Route: 048
  15. CLOPIDOGREL [Concomitant]
     Active Substance: CLOPIDOGREL BISULFATE
     Indication: ARTERITIS
     Dosage: 1-0-0
     Route: 048
  16. TEMESTA                            /00273201/ [Concomitant]
     Active Substance: LORAZEPAM
     Indication: ANXIETY
     Dosage: 1-1-1-1
     Route: 048
  17. FLAGYL [Suspect]
     Active Substance: METRONIDAZOLE\METRONIDAZOLE HYDROCHLORIDE
     Indication: PNEUMONIA
     Dosage: 1-1-1
     Route: 048
     Dates: start: 20191008, end: 20191009
  18. ALIMTA [Suspect]
     Active Substance: PEMETREXED DISODIUM
     Indication: LUNG ADENOCARCINOMA
     Dosage: 1000 MILLIGRAM, CYCLE
     Route: 042
     Dates: start: 20190916, end: 20191007
  19. DOLIPRANE [Concomitant]
     Active Substance: ACETAMINOPHEN
     Indication: PAIN
     Dosage: 2-2-2-2
     Route: 048
     Dates: start: 20190816
  20. PIPERACILLIN AND TAZOBACTAM [Suspect]
     Active Substance: PIPERACILLIN SODIUM\TAZOBACTAM SODIUM
     Indication: PNEUMONIA
     Dosage: 1 INJECTION
     Route: 042
     Dates: start: 20191008, end: 20191008
  21. CORTANCYL [Concomitant]
     Active Substance: PREDNISONE
     Indication: INTRACRANIAL PRESSURE INCREASED
     Dosage: 4-0-0
     Route: 048
  22. SPASFON                            /00765801/ [Concomitant]
     Active Substance: PHLOROGLUCINOL\1,3,5-TRIMETHOXYBENZENE
     Indication: PAIN
     Dosage: SI BESOIN (MAX 6/J)
     Route: 048
  23. LEVETIRACETAM MYLAN [Concomitant]
     Active Substance: LEVETIRACETAM
     Indication: INTRACRANIAL PRESSURE INCREASED
     Dosage: 1-0-1
     Route: 048
     Dates: start: 20190816, end: 20191008
  24. IMOVANE [Concomitant]
     Active Substance: ZOPICLONE
     Indication: SLEEP DISORDER
     Dosage: 7.5 MILLIGRAM, QD
     Route: 048
     Dates: start: 20190918, end: 20191007

REACTIONS (3)
  - Aplasia [Recovering/Resolving]
  - Agranulocytosis [Recovered/Resolved]
  - Leukopenia [Recovering/Resolving]

NARRATIVE: CASE EVENT DATE: 20191009
